FAERS Safety Report 4870127-9 (Version None)
Quarter: 2005Q4

REPORT INFORMATION
  Report Type: 
  Country: None (occurrence: None)
  Receive Date: 20051227
  Receipt Date: 20051215
  Transmission Date: 20060501
  Serious: No
  Sender: FDA-Public Use
  Company Number: 26574

PATIENT
  Age: 82 Year
  Sex: Female

DRUGS (4)
  1. AZOPT [Suspect]
     Indication: GLAUCOMA
     Dosage: 1 FTT OD BID OPHT
     Dates: start: 20030714, end: 20030818
  2. LATANAPROST SODIUM [Concomitant]
  3. TIMOLOL MALEATE [Concomitant]
  4. DIPIVEFRINE [Concomitant]

REACTIONS (3)
  - CORNEAL DISORDER [None]
  - VISION BLURRED [None]
  - VISUAL ACUITY REDUCED [None]
